FAERS Safety Report 18320252 (Version 2)
Quarter: 2020Q4

REPORT INFORMATION
  Report Type: Report from Study
  Country: CA (occurrence: CA)
  Receive Date: 20200928
  Receipt Date: 20201207
  Transmission Date: 20210113
  Serious: Yes (Other)
  Sender: FDA-Public Use
  Company Number: CA-ELI_LILLY_AND_COMPANY-CA202006011896

PATIENT
  Sex: Female

DRUGS (1)
  1. OLUMIANT [Suspect]
     Active Substance: BARICITINIB
     Indication: RHEUMATOID ARTHRITIS
     Dosage: 2 MG, UNKNOWN
     Route: 048
     Dates: start: 20200531, end: 20200914

REACTIONS (4)
  - Hypoaesthesia [Unknown]
  - Weight increased [Unknown]
  - Herpes virus infection [Unknown]
  - Oedema peripheral [Recovered/Resolved]
